FAERS Safety Report 9970356 (Version 1)
Quarter: 2014Q1

REPORT INFORMATION
  Report Type: Report from Study
  Country: US (occurrence: US)
  Receive Date: 20140306
  Receipt Date: 20140306
  Transmission Date: 20141002
  Serious: No
  Sender: FDA-Public Use
  Company Number: US-ABBVIE-13P-163-1149602-00

PATIENT
  Age: 41 Year
  Sex: Female

DRUGS (9)
  1. HUMIRA [Suspect]
     Indication: CROHN^S DISEASE
     Dates: start: 20130913
  2. SYNTHROID [Concomitant]
     Indication: HYPOTHYROIDISM
  3. REMERON [Concomitant]
     Indication: PRODUCT USED FOR UNKNOWN INDICATION
     Dosage: 30MG DAILY
  4. PROZAC [Concomitant]
     Indication: DEPRESSION
     Dosage: 40MG DAILY
  5. PHENERGAN [Concomitant]
     Indication: PRODUCT USED FOR UNKNOWN INDICATION
     Dosage: 25MG DAILY
  6. REGLAN [Concomitant]
     Indication: NAUSEA
     Dosage: 10MG DAILY
  7. TEMAZEPAM [Concomitant]
     Indication: INSOMNIA
     Dosage: AT NIGHT
  8. OMEPRAZOLE [Concomitant]
     Indication: GASTROOESOPHAGEAL REFLUX DISEASE
     Dosage: 20MG DAILLY
  9. LORTAB [Concomitant]
     Indication: MIGRAINE

REACTIONS (2)
  - Fatigue [Not Recovered/Not Resolved]
  - Fatigue [Not Recovered/Not Resolved]
